FAERS Safety Report 6813405-6 (Version None)
Quarter: 2010Q3

REPORT INFORMATION
  Report Type: 
  Country: None (occurrence: None)
  Receive Date: 20100701
  Receipt Date: 20100622
  Transmission Date: 20110219
  Serious: Yes (Death)
  Sender: FDA-Public Use
  Company Number: PL-PFIZER INC-2009260597

PATIENT
  Age: 51 Year
  Sex: Female
  Weight: 60 kg

DRUGS (5)
  1. ERLOTINIB HYDROCHLORIDE [Suspect]
     Indication: NON-SMALL CELL LUNG CANCER
     Dosage: 150 MG (MOST RECENT DOSE), 1X/DAY
     Route: 048
     Dates: start: 20080825, end: 20081201
  2. SUNITINIB MALATE [Suspect]
     Indication: NON-SMALL CELL LUNG CANCER
     Dosage: 37.5 MG (MOST RECENT DOSE), 1X/DAY
     Route: 048
     Dates: start: 20080825, end: 20081201
  3. TARCEVA [Suspect]
     Indication: NON-SMALL CELL LUNG CANCER
     Dosage: 37.5 MG (MOST RECENT DOSE), 1X/DAY
     Route: 048
     Dates: start: 20080825, end: 20081201
  4. SUNITINIB MALATE [Suspect]
     Indication: NON-SMALL CELL LUNG CANCER
     Dosage: 37.5 MG (MOST RECENT DOSE), 1X/DAY
     Route: 048
     Dates: start: 20080825, end: 20081201
  5. CLODRONATE DISODIUM [Concomitant]
     Indication: HYPERCALCAEMIA
     Dosage: UNK
     Dates: start: 20081117

REACTIONS (1)
  - DEATH [None]
